FAERS Safety Report 13014866 (Version 2)
Quarter: 2017Q1

REPORT INFORMATION
  Report Type: Spontaneous
  Country: DK (occurrence: DK)
  Receive Date: 20161209
  Receipt Date: 20170205
  Transmission Date: 20170428
  Serious: Yes (Congenital Anomaly)
  Sender: FDA-Public Use
  Company Number: PHHY2016DK164504

PATIENT
  Age: 0 Day
  Sex: Male

DRUGS (1)
  1. SUMATRIPTAN. [Suspect]
     Active Substance: SUMATRIPTAN
     Indication: MIGRAINE
     Dosage: UNK (DOSAGE: WHEN NEEDED (APPROXIMATELY THREE TIMES DURING PREGNANCY), STRENGTH: 50 MG.
     Route: 064
     Dates: start: 20091130, end: 20100228

REACTIONS (5)
  - Growth retardation [Recovered/Resolved]
  - Congenital genital malformation male [Recovered/Resolved]
  - Premature baby [Unknown]
  - Foetal malnutrition [Recovered/Resolved]
  - Foetal exposure during pregnancy [Unknown]

NARRATIVE: CASE EVENT DATE: 20100501
